FAERS Safety Report 11536916 (Version 1)
Quarter: 2015Q3

REPORT INFORMATION
  Report Type: Spontaneous
  Country: US (occurrence: None)
  Receive Date: 20150921
  Receipt Date: 20150921
  Transmission Date: 20151125
  Serious: No
  Sender: FDA-Public Use
  Company Number: None

PATIENT
  Age: 52 Year
  Sex: Female
  Weight: 146.51 kg

DRUGS (6)
  1. NOVOLOG [Concomitant]
     Active Substance: INSULIN ASPART
  2. VENLAFAXINE [Concomitant]
     Active Substance: VENLAFAXINE HYDROCHLORIDE
  3. NOVOLOG [Suspect]
     Active Substance: INSULIN ASPART
     Indication: TYPE 2 DIABETES MELLITUS
     Dosage: V-GO CONSTANT
     Dates: start: 20150706, end: 20150918
  4. V-GO [Concomitant]
  5. OMEPRAZOLE. [Concomitant]
     Active Substance: OMEPRAZOLE
  6. WOMENS 1 A DAY [Concomitant]

REACTIONS (5)
  - Burning sensation [None]
  - Muscle contractions involuntary [None]
  - Pruritus [None]
  - Lip swelling [None]
  - Gingival discolouration [None]

NARRATIVE: CASE EVENT DATE: 20150919
